FAERS Safety Report 23575930 (Version 1)
Quarter: 2024Q1

REPORT INFORMATION
  Report Type: Spontaneous
  Country: DE (occurrence: DE)
  Receive Date: 20240228
  Receipt Date: 20240228
  Transmission Date: 20240409
  Serious: Yes (Other)
  Sender: FDA-Public Use
  Company Number: None

PATIENT

DRUGS (1)
  1. CYTOTEC [Suspect]
     Active Substance: MISOPROSTOL
     Indication: Labour induction
     Dosage: UNK
     Route: 064
     Dates: start: 20180825, end: 20180825

REACTIONS (5)
  - Foetal exposure during delivery [Recovered/Resolved]
  - Foetal cardiac arrest [Recovered/Resolved]
  - Developmental delay [Recovered/Resolved]
  - Bone disorder [Recovered/Resolved]
  - Neonatal disorder [Recovered/Resolved]

NARRATIVE: CASE EVENT DATE: 20180801
